FAERS Safety Report 24064496 (Version 2)
Quarter: 2024Q3

REPORT INFORMATION
  Report Type: Report from Study
  Country: US (occurrence: US)
  Receive Date: 20240709
  Receipt Date: 20240926
  Transmission Date: 20241017
  Serious: Yes (Hospitalization, Other)
  Sender: ROCHE
  Company Number: US-ROCHE-10000017001

PATIENT
  Age: 70 Year
  Sex: Female

DRUGS (3)
  1. ENSPRYNG [Suspect]
     Active Substance: SATRALIZUMAB-MWGE
     Indication: Neuromyelitis optica spectrum disorder
     Dosage: EVERY 2 WEEK(S) FOR 3 DOSES. ROTATE INJECTION SITES?FREQUENCY: WEEKS 0, 2, 4
     Route: 058
     Dates: start: 20240311
  2. ENSPRYNG [Suspect]
     Active Substance: SATRALIZUMAB-MWGE
  3. ENSPRYNG [Suspect]
     Active Substance: SATRALIZUMAB-MWGE

REACTIONS (2)
  - Pneumonia [Unknown]
  - Hip fracture [Unknown]

NARRATIVE: CASE EVENT DATE: 20240501
